FAERS Safety Report 6764703-6 (Version None)
Quarter: 2010Q2

REPORT INFORMATION
  Report Type: 
  Country: None (occurrence: None)
  Receive Date: 20100609
  Receipt Date: 20100510
  Transmission Date: 20101027
  Serious: No
  Sender: FDA-Public Use
  Company Number: 2010011319

PATIENT
  Age: 7 Year
  Sex: Female
  Weight: 27.2158 kg

DRUGS (6)
  1. CHILDREN'S ZYRTEC ALLERGY [Suspect]
     Indication: ASTHMA
     Dosage: 1 TEASPOONFUL DAILY, ORAL
     Route: 048
     Dates: start: 20040101
  2. ACETAMINOPHEN [Concomitant]
  3. IBUPROFEN [Concomitant]
  4. LORATADINE [Concomitant]
  5. MOMETASONE FUROATE [Concomitant]
  6. MONTELUKAST SODIUM [Concomitant]

REACTIONS (6)
  - ABDOMINAL PAIN UPPER [None]
  - CRYING [None]
  - OFF LABEL USE [None]
  - PRODUCT QUALITY ISSUE [None]
  - PYREXIA [None]
  - VOMITING [None]
